FAERS Safety Report 5330927-8 (Version None)
Quarter: 2007Q2

REPORT INFORMATION
  Report Type: 
  Country: None (occurrence: None)
  Receive Date: 20070522
  Receipt Date: 20070517
  Transmission Date: 20071010
  Serious: Yes (Other)
  Sender: FDA-Public Use
  Company Number: US-ASTRAZENECA-2006UW25737

PATIENT
  Age: 86 Year
  Sex: Female
  Weight: 49.9 kg

DRUGS (11)
  1. ARIMIDEX [Suspect]
     Indication: BREAST CANCER STAGE II
     Route: 048
     Dates: start: 20020101
  2. FOSOMAX [Concomitant]
     Dates: start: 19970101
  3. LISINOPRIL [Concomitant]
  4. TOPROL-XL [Concomitant]
  5. CALCIUM CHLORIDE [Concomitant]
     Dates: start: 19970101
  6. PREVISION [Concomitant]
     Indication: MACULAR DEGENERATION
  7. LORAZEPAM [Concomitant]
  8. CENTRUM SILVER [Concomitant]
  9. GLUCOSAMINE/CHONDROITIN [Concomitant]
  10. CHOLESTYRAMINE [Concomitant]
  11. HIGH ANTIOXIDANTS [Concomitant]

REACTIONS (8)
  - ARTHRALGIA [None]
  - COLON CANCER STAGE III [None]
  - HEADACHE [None]
  - HOT FLUSH [None]
  - NAUSEA [None]
  - PAIN IN EXTREMITY [None]
  - TENDERNESS [None]
  - VULVOVAGINAL DRYNESS [None]
